FAERS Safety Report 5053445-3 (Version None)
Quarter: 2006Q3

REPORT INFORMATION
  Report Type: 
  Country: None (occurrence: None)
  Receive Date: 20060712
  Receipt Date: 20060630
  Transmission Date: 20061208
  Serious: Yes (Other)
  Sender: FDA-Public Use
  Company Number: 14338

PATIENT
  Age: 48 Year
  Sex: Female
  Weight: 64 kg

DRUGS (6)
  1. PACLITAXEL [Suspect]
     Dosage: 175 MG/M2
  2. SALSOL A [Concomitant]
  3. SOLU-MEDROL [Concomitant]
  4. ZANTAC [Concomitant]
  5. SUPRASTIN [Concomitant]
  6. ORADEXON TAB [Concomitant]

REACTIONS (5)
  - ABDOMINAL PAIN UPPER [None]
  - ARTHRALGIA [None]
  - GROIN PAIN [None]
  - PAIN [None]
  - PHARYNGOLARYNGEAL PAIN [None]
